FAERS Safety Report 9473549 (Version 1)
Quarter: 2013Q3

REPORT INFORMATION
  Report Type: Spontaneous
  Country: US (occurrence: US)
  Receive Date: 20130823
  Receipt Date: 20130823
  Transmission Date: 20140515
  Serious: No
  Sender: FDA-Public Use
  Company Number: US-GALDERMA-US13001975

PATIENT
  Age: 66 Year
  Sex: Female

DRUGS (5)
  1. METROGEL (METRONIDAZOLE) GEL, 1% [Suspect]
     Indication: ROSACEA
     Route: 061
     Dates: start: 20130521, end: 20130606
  2. METROGEL (METRONIDAZOLE) GEL, 1% [Suspect]
     Route: 061
     Dates: start: 20130506, end: 20130506
  3. METOPROLOL [Concomitant]
     Indication: MITRAL VALVE PROLAPSE
     Route: 048
  4. EQUATE INTENSIVE THERAPY LOTION FOR DRY SKIN [Concomitant]
     Indication: DRY SKIN PROPHYLAXIS
     Route: 061
  5. UNKNOWN HYPO-ALLERGENIC LIQUID SOAP [Concomitant]
     Indication: THERAPEUTIC SKIN CARE TOPICAL
     Route: 061

REACTIONS (1)
  - Skin burning sensation [Recovered/Resolved]
